FAERS Safety Report 7573519-2 (Version None)
Quarter: 2011Q2

REPORT INFORMATION
  Report Type: 
  Country: None (occurrence: None)
  Receive Date: 20110627
  Receipt Date: 20110622
  Transmission Date: 20111010
  Serious: Yes (Death)
  Sender: FDA-Public Use
  Company Number: PHHY2010CA60450

PATIENT
  Sex: Female

DRUGS (2)
  1. SANDOSTATIN LAR [Suspect]
     Dosage: 30 MG EVERY 4 WEEKS
     Route: 030
     Dates: end: 20110622
  2. SANDOSTATIN LAR [Suspect]
     Indication: NEUROENDOCRINE TUMOUR
     Dosage: 30 MG EVERY 4 WEEKS
     Route: 030
     Dates: start: 20100908

REACTIONS (5)
  - INJECTION SITE PAIN [None]
  - DIARRHOEA [None]
  - DEATH [None]
  - INFLUENZA [None]
  - FATIGUE [None]
